FAERS Safety Report 14501341 (Version 1)
Quarter: 2018Q1

REPORT INFORMATION
  Report Type: Spontaneous
  Country: US (occurrence: US)
  Receive Date: 20180207
  Receipt Date: 20180207
  Transmission Date: 20180509
  Serious: No
  Sender: FDA-Public Use
  Company Number: US-AMGEN-USASP2017181085

PATIENT
  Age: 64 Year
  Sex: Male

DRUGS (4)
  1. CISPLATIN. [Concomitant]
     Active Substance: CISPLATIN
     Indication: URETHRAL CANCER
     Dosage: UNK UNK, CYCLICAL
  2. NEULASTA [Suspect]
     Active Substance: PEGFILGRASTIM
     Dosage: 3 MG, CYCLICAL
     Route: 065
     Dates: start: 201711
  3. NEULASTA [Suspect]
     Active Substance: PEGFILGRASTIM
     Indication: NEUTROPENIA
     Dosage: 6 MG, CYCLICAL (WITH EACH CHEMOTHERAPY CYCLE)
     Route: 065
  4. GEMCITABINE [Concomitant]
     Active Substance: GEMCITABINE\GEMCITABINE HYDROCHLORIDE
     Indication: URETHRAL CANCER
     Dosage: UNK UNK, CYCLICAL

REACTIONS (1)
  - Syncope [Unknown]

NARRATIVE: CASE EVENT DATE: 201711
